FAERS Safety Report 24984592 (Version 2)
Quarter: 2025Q2

REPORT INFORMATION
  Report Type: Report from Study
  Country: CA (occurrence: CA)
  Receive Date: 20250219
  Receipt Date: 20250421
  Transmission Date: 20250716
  Serious: Yes (Disabling)
  Sender: BIOCON
  Company Number: CA-MIMS-BCONMC-7460

PATIENT

DRUGS (2)
  1. HULIO [Suspect]
     Active Substance: ADALIMUMAB-FKJP
     Indication: Rheumatoid arthritis
     Route: 058
     Dates: start: 20231204
  2. HULIO [Suspect]
     Active Substance: ADALIMUMAB-FKJP
     Dosage: UNK, QWEEK (WEEKLY DOSAGE)
     Route: 065

REACTIONS (4)
  - Loss of personal independence in daily activities [Unknown]
  - Product administration error [Unknown]
  - Product dose omission issue [Unknown]
  - Device malfunction [Unknown]

NARRATIVE: CASE EVENT DATE: 20231218
